FAERS Safety Report 15405502 (Version 1)
Quarter: 2018Q3

REPORT INFORMATION
  Report Type: Report from Study
  Country: TR (occurrence: TR)
  Receive Date: 20180920
  Receipt Date: 20180920
  Transmission Date: 20181010
  Serious: Yes (Hospitalization, Other)
  Sender: FDA-Public Use
  Company Number: TR-ACCORD-071728

PATIENT
  Age: 70 Year
  Sex: Female

DRUGS (8)
  1. HYDROXYCHLOROQUINE/HYDROXYCHLOROQUINE PHOSPHATE/HYDROXYCHLOROQUINE SULFATE [Concomitant]
  2. PREDNISONE/PREDNISONE ACETATE [Concomitant]
  3. INSULIN [Concomitant]
     Active Substance: INSULIN NOS
  4. FOLATE SODIUM/FOLIC ACID [Concomitant]
  5. LANSOPRAZOLE. [Concomitant]
     Active Substance: LANSOPRAZOLE
  6. METOPROLOL. [Concomitant]
     Active Substance: METOPROLOL
  7. METHOTREXATE. [Suspect]
     Active Substance: METHOTREXATE
     Indication: PRODUCT USED FOR UNKNOWN INDICATION
  8. IVABRADINE/IVABRADINE HYDROCHLORIDE [Concomitant]

REACTIONS (3)
  - Pyrexia [Recovered/Resolved]
  - Pancytopenia [Recovered/Resolved]
  - Mucosal inflammation [Recovered/Resolved]
